FAERS Safety Report 22659591 (Version 4)
Quarter: 2023Q4

REPORT INFORMATION
  Report Type: Report from Study
  Country: US (occurrence: US)
  Receive Date: 20230630
  Receipt Date: 20231106
  Transmission Date: 20240110
  Serious: Yes (Life-Threatening, Hospitalization)
  Sender: FDA-Public Use
  Company Number: US-002147023-NVSC2023US148449

PATIENT
  Age: 37 Year
  Sex: Female
  Weight: 119.3 kg

DRUGS (25)
  1. OFATUMUMAB [Suspect]
     Active Substance: OFATUMUMAB
     Indication: Multiple sclerosis relapse
     Dosage: 20 MG, Q4W
     Route: 058
     Dates: start: 20190826, end: 20230523
  2. UNSPECIFIED INGREDIENT [Suspect]
     Active Substance: UNSPECIFIED INGREDIENT
     Indication: Multiple sclerosis relapse
     Dosage: NO TREATMENT
     Route: 065
  3. INTROVALE [Concomitant]
     Active Substance: ETHINYL ESTRADIOL\LEVONORGESTREL
     Indication: Contraception
     Dosage: 1 UNK, QD
     Route: 048
     Dates: start: 2017
  4. LEXAPRO [Concomitant]
     Active Substance: ESCITALOPRAM OXALATE
     Indication: Depression
     Dosage: UNK
     Route: 065
     Dates: start: 20190826
  5. WOMENS MULTI ONE A DAY [Concomitant]
     Indication: General physical condition
     Dosage: 1 UNK, QD
     Route: 048
     Dates: start: 20200714
  6. WELLBUTRIN [Concomitant]
     Active Substance: BUPROPION HYDROCHLORIDE
     Indication: Fatigue
     Dosage: 300 MG, QD
     Route: 048
     Dates: start: 20200714
  7. MOTRIN [Concomitant]
     Active Substance: IBUPROFEN
     Indication: Prophylaxis
     Dosage: 800 MG, PRN
     Route: 048
     Dates: start: 20210304
  8. NORCO [Concomitant]
     Active Substance: ACETAMINOPHEN\HYDROCODONE BITARTRATE
     Indication: Prophylaxis
     Dosage: 5/325 MG, PRN
     Route: 048
     Dates: start: 20210304
  9. IRON [Concomitant]
     Active Substance: IRON
     Indication: General physical condition
     Dosage: 65 MG, QD
     Route: 048
     Dates: start: 20190422
  10. TYLENOL [Concomitant]
     Active Substance: ACETAMINOPHEN
     Indication: Multiple sclerosis
     Dosage: 1000 MG, ONCE/SINGLE
     Route: 048
     Dates: start: 20190506, end: 20190506
  11. TYLENOL [Concomitant]
     Active Substance: ACETAMINOPHEN
     Dosage: 1000 MG, ONCE/SINGLE
     Route: 048
     Dates: start: 20190513, end: 20190513
  12. BENADRYL [Concomitant]
     Active Substance: DIPHENHYDRAMINE HYDROCHLORIDE
     Indication: Multiple sclerosis
     Dosage: 50 MG, ONCE/SINGLE
     Route: 048
     Dates: start: 20190506, end: 20190506
  13. BENADRYL [Concomitant]
     Active Substance: DIPHENHYDRAMINE HYDROCHLORIDE
     Dosage: 50 MG, ONCE/SINGLE
     Route: 048
     Dates: start: 20190513, end: 20190513
  14. AMPICILLIN [Concomitant]
     Active Substance: AMPICILLIN
     Indication: Urinary tract infection
     Dosage: 500 MG, TID
     Route: 048
     Dates: start: 20190614, end: 20190624
  15. AMPICILLIN [Concomitant]
     Active Substance: AMPICILLIN
     Dosage: 250 MG, TID
     Route: 048
     Dates: start: 20210701, end: 20210711
  16. PENICILLIN [Concomitant]
     Active Substance: PENICILLIN
     Indication: Pharyngitis streptococcal
     Dosage: 500 MG, BID
     Route: 048
     Dates: start: 20201112, end: 20201121
  17. MACROBID [Concomitant]
     Active Substance: NITROFURANTOIN\NITROFURANTOIN MONOHYDRATE
     Indication: Urinary tract infection
     Dosage: 100 MG, BID
     Route: 048
     Dates: start: 20201230, end: 20210106
  18. MACROBID [Concomitant]
     Active Substance: NITROFURANTOIN\NITROFURANTOIN MONOHYDRATE
     Dosage: 100 MG, BID
     Route: 048
     Dates: start: 20210429, end: 20210509
  19. MACROBID [Concomitant]
     Active Substance: NITROFURANTOIN\NITROFURANTOIN MONOHYDRATE
     Dosage: 100 MG, BID
     Route: 048
     Dates: start: 20211108, end: 20211112
  20. PHENTERMINE [Concomitant]
     Active Substance: PHENTERMINE
     Indication: Obesity
     Dosage: 37.5 MG, QD
     Route: 048
     Dates: start: 20210217
  21. AMOXICILLIN [Concomitant]
     Active Substance: AMOXICILLIN
     Indication: Prophylaxis
     Dosage: 500 MG, TID
     Route: 048
     Dates: start: 20210304, end: 20210311
  22. CYCLOBENZAPRINE [Concomitant]
     Active Substance: CYCLOBENZAPRINE
     Indication: Back pain
     Dosage: 5 MG, QD
     Route: 048
     Dates: start: 20211004, end: 20211011
  23. IBUPROFEN [Concomitant]
     Active Substance: IBUPROFEN
     Indication: Back pain
     Dosage: 800 MG, TID
     Route: 048
     Dates: start: 20211004, end: 20211011
  24. CEPHALEXIN [Concomitant]
     Active Substance: CEPHALEXIN
     Indication: Urinary tract infection
     Dosage: 300 MG, BID
     Route: 048
     Dates: start: 20211012, end: 20211019
  25. CIPROFLOXACIN [Concomitant]
     Active Substance: CIPROFLOXACIN
     Indication: Kidney infection
     Dosage: 250 MG, BID
     Route: 048
     Dates: start: 20211203, end: 20211208

REACTIONS (1)
  - Neutropenia [Recovered/Resolved]

NARRATIVE: CASE EVENT DATE: 20230622
